FAERS Safety Report 6311719-X (Version None)
Quarter: 2009Q3

REPORT INFORMATION
  Report Type: 
  Country: None (occurrence: None)
  Receive Date: 20090817
  Receipt Date: 20090714
  Transmission Date: 20100115
  Serious: No
  Sender: FDA-Public Use
  Company Number: US-B.I. PHARMACEUTICALS,INC./RIDGEFIELD-2009-BP-09618BP

PATIENT
  Sex: Male

DRUGS (3)
  1. VIRAMUNE [Suspect]
     Indication: HIV INFECTION
  2. EPIVIR [Concomitant]
     Indication: HIV INFECTION
  3. ZERIT [Concomitant]
     Indication: HIV INFECTION

REACTIONS (4)
  - ABDOMINAL DISTENSION [None]
  - CD4 LYMPHOCYTES [None]
  - DRUG TOXICITY [None]
  - GASTRIC ULCER [None]
